FAERS Safety Report 5007369-8 (Version None)
Quarter: 2006Q2

REPORT INFORMATION
  Report Type: 
  Country: None (occurrence: None)
  Receive Date: 20060519
  Receipt Date: 20060519
  Transmission Date: 20061013
  Serious: Yes (Other)
  Sender: FDA-Public Use
  Company Number: None

PATIENT
  Sex: Male
  Weight: 89.3586 kg

DRUGS (1)
  1. AMIODARONE 200MG [Suspect]
     Dosage: 200MG TWICE A DAY PO
     Route: 048
     Dates: start: 20031101, end: 20060109

REACTIONS (5)
  - CARDIAC FAILURE [None]
  - DRUG TOXICITY [None]
  - PNEUMONIA [None]
  - PULMONARY TOXICITY [None]
  - RESPIRATORY FAILURE [None]
